FAERS Safety Report 5112724-1 (Version None)
Quarter: 2006Q3

REPORT INFORMATION
  Report Type: 
  Country: None (occurrence: None)
  Receive Date: 20060922
  Receipt Date: 20060918
  Transmission Date: 20061208
  Serious: Yes (Life-Threatening)
  Sender: FDA-Public Use
  Company Number: NL-GLAXOSMITHKLINE-B0438879A

PATIENT
  Age: 10 Day
  Sex: Male
  Weight: 1 kg

DRUGS (3)
  1. LAMIVUDINE [Suspect]
     Indication: ANTIVIRAL PROPHYLAXIS
     Route: 048
     Dates: start: 20060821, end: 20060831
  2. RETROVIR [Concomitant]
     Indication: DRUG USE FOR UNKNOWN INDICATION
     Route: 065
     Dates: start: 20060831
  3. COFFEINE [Concomitant]
     Indication: DRUG USE FOR UNKNOWN INDICATION
     Route: 065
     Dates: start: 20060821, end: 20060901

REACTIONS (2)
  - NECROTISING COLITIS [None]
  - PREMATURE BABY [None]
